FAERS Safety Report 16774956 (Version 2)
Quarter: 2019Q3

REPORT INFORMATION
  Report Type: Spontaneous
  Country: IL (occurrence: IL)
  Receive Date: 20190905
  Receipt Date: 20190912
  Transmission Date: 20191005
  Serious: Yes (Death, Hospitalization)
  Sender: FDA-Public Use
  Company Number: IL-BAYER-2019-159693

PATIENT
  Age: 67 Year
  Sex: Male

DRUGS (2)
  1. XOFIGO [Suspect]
     Active Substance: RADIUM RA-223 DICHLORIDE
     Indication: HORMONE-REFRACTORY PROSTATE CANCER
     Dosage: UNK
     Dates: start: 20190725, end: 20190725
  2. XOFIGO [Suspect]
     Active Substance: RADIUM RA-223 DICHLORIDE
     Indication: HORMONE-REFRACTORY PROSTATE CANCER
     Dosage: UNK
     Dates: start: 20190627, end: 20190627

REACTIONS (4)
  - Pancytopenia [Fatal]
  - Anaemia [Fatal]
  - Hypercalcaemia [Fatal]
  - Hormone-refractory prostate cancer [Fatal]

NARRATIVE: CASE EVENT DATE: 2019
